FAERS Safety Report 5587380-9 (Version None)
Quarter: 2007Q4

REPORT INFORMATION
  Report Type: 
  Country: None (occurrence: None)
  Receive Date: 20071205
  Receipt Date: 20061130
  Transmission Date: 20080405
  Serious: Yes (Other)
  Sender: FDA-Public Use
  Company Number: HQWYE016201DEC06

PATIENT

DRUGS (5)
  1. EFFEXOR XR [Suspect]
     Dosage: 150 MG 1X PER 1 DAY, TRANSPLACENTAL
     Route: 064
  2. LEVOXYL [Concomitant]
  3. ALBUTEROL [Concomitant]
  4. PREDNISONE TAB [Concomitant]
  5. FLOVENT [Concomitant]

REACTIONS (2)
  - CONVULSION NEONATAL [None]
  - DRUG EXPOSURE DURING PREGNANCY [None]
